FAERS Safety Report 10245353 (Version 1)
Quarter: 2014Q2

REPORT INFORMATION
  Report Type: Report from Study
  Country: AR (occurrence: AR)
  Receive Date: 20140618
  Receipt Date: 20140618
  Transmission Date: 20141212
  Serious: Yes (Other)
  Sender: FDA-Public Use
  Company Number: AR-ROCHE-1420454

PATIENT
  Sex: 0

DRUGS (4)
  1. TRASTUZUMAB [Suspect]
     Indication: BREAST CANCER METASTATIC
     Dosage: LOADING DOSE
     Route: 042
  2. TRASTUZUMAB [Suspect]
     Dosage: MAINTAINENCE DOSE
     Route: 042
  3. PATRITUMAB [Suspect]
     Indication: BREAST CANCER METASTATIC
     Route: 042
  4. PACLITAXEL [Suspect]
     Indication: BREAST CANCER METASTATIC
     Route: 042

REACTIONS (4)
  - Stomatitis [Unknown]
  - Electrocardiogram QT prolonged [Unknown]
  - Influenza like illness [Unknown]
  - Transaminases increased [Unknown]
